FAERS Safety Report 10197003 (Version 1)
Quarter: 2014Q2

REPORT INFORMATION
  Report Type: Spontaneous
  Country: US (occurrence: None)
  Receive Date: 20140523
  Receipt Date: 20140523
  Transmission Date: 20141212
  Serious: Yes (Hospitalization)
  Sender: FDA-Public Use
  Company Number: None

PATIENT
  Age: 64 Year
  Sex: Female

DRUGS (10)
  1. WARFARIN [Suspect]
     Indication: ATRIAL FIBRILLATION
     Route: 048
     Dates: start: 20140407, end: 20140407
  2. ASA [Concomitant]
  3. ATORVASTATIN [Concomitant]
  4. CARVEDILOL [Concomitant]
  5. FUROSEMIDE [Concomitant]
  6. HYDRALAZINE [Concomitant]
  7. ISOSORBIDE MONONITRATE [Concomitant]
  8. LEVOTHYROXINE [Concomitant]
  9. PANTOPRAZOLE [Concomitant]
  10. WARFARIN [Concomitant]

REACTIONS (2)
  - International normalised ratio increased [None]
  - Gastrointestinal haemorrhage [None]
